FAERS Safety Report 14449704 (Version 5)
Quarter: 2018Q2

REPORT INFORMATION
  Report Type: Spontaneous
  Country: US (occurrence: US)
  Receive Date: 20180128
  Receipt Date: 20180423
  Transmission Date: 20180711
  Serious: Yes (Death, Hospitalization)
  Sender: FDA-Public Use
  Company Number: PHEH2018US003224

PATIENT
  Age: 50 Year
  Sex: Female
  Weight: 65.76 kg

DRUGS (4)
  1. TEGRETOL [Concomitant]
     Active Substance: CARBAMAZEPINE
     Indication: PRODUCT USED FOR UNKNOWN INDICATION
     Dosage: UNK
     Route: 065
     Dates: end: 20180110
  2. GABAPENTIN. [Concomitant]
     Active Substance: GABAPENTIN
     Indication: PRODUCT USED FOR UNKNOWN INDICATION
     Dosage: UNK
     Route: 065
     Dates: end: 20180110
  3. GILENYA [Suspect]
     Active Substance: FINGOLIMOD HYDROCHLORIDE
     Indication: MULTIPLE SCLEROSIS
     Dosage: 0.5 MG, QD
     Route: 048
     Dates: start: 20120301, end: 201801
  4. AMPYRA [Concomitant]
     Active Substance: DALFAMPRIDINE
     Indication: PRODUCT USED FOR UNKNOWN INDICATION
     Dosage: UNK
     Route: 065
     Dates: end: 20180110

REACTIONS (17)
  - Lymphocyte count decreased [Unknown]
  - Meningitis cryptococcal [Fatal]
  - Seizure [Fatal]
  - Vision blurred [Fatal]
  - Lethargy [Fatal]
  - Urinary tract infection [Unknown]
  - Dizziness [Fatal]
  - Hyponatraemia [Unknown]
  - Headache [Fatal]
  - Brain oedema [Fatal]
  - Incontinence [Fatal]
  - Somnolence [Fatal]
  - Gait disturbance [Fatal]
  - Fatigue [Fatal]
  - Unresponsive to stimuli [Fatal]
  - Aphasia [Fatal]
  - Neck pain [Fatal]

NARRATIVE: CASE EVENT DATE: 201801
